FAERS Safety Report 6529376-6 (Version None)
Quarter: 2009Q4

REPORT INFORMATION
  Report Type: 
  Country: None (occurrence: None)
  Receive Date: 20091231
  Receipt Date: 20091224
  Transmission Date: 20100525
  Serious: Yes (Hospitalization)
  Sender: FDA-Public Use
  Company Number: SP02681

PATIENT
  Age: 78 Year
  Sex: Female

DRUGS (8)
  1. VISICOL [Suspect]
     Indication: BOWEL PREPARATION
     Dosage: ORAL
     Route: 048
     Dates: start: 20091104, end: 20091104
  2. BIODIASTASE 2000 [Concomitant]
  3. REBEMIPIDE [Concomitant]
  4. TEPRENONE [Concomitant]
  5. LOSARTAN  POTASSIUM/HCTZ [Concomitant]
  6. AZELNIDIPINE [Concomitant]
  7. MECOBALAMIN [Concomitant]
  8. DIAZEPAM [Concomitant]

REACTIONS (5)
  - COLD SWEAT [None]
  - DECREASED APPETITE [None]
  - DYSGEUSIA [None]
  - PAIN [None]
  - RENAL FAILURE ACUTE [None]
